FAERS Safety Report 20409303 (Version 1)
Quarter: 2022Q1

REPORT INFORMATION
  Report Type: Other
  Country: None (occurrence: US)
  Receive Date: 20220201
  Receipt Date: 20220201
  Transmission Date: 20220423
  Serious: Yes (Hospitalization)
  Sender: FDA-Public Use
  Company Number: US-Appco Pharma LLC-2124490

PATIENT
  Age: 50 Year
  Sex: Male

DRUGS (3)
  1. HYDROXYCHLOROQUINE SULFATE [Suspect]
     Active Substance: HYDROXYCHLOROQUINE SULFATE
     Indication: COVID-19
     Route: 065
  2. AZITHROMYCIN MONOHYDRATE [Suspect]
     Active Substance: AZITHROMYCIN MONOHYDRATE
     Route: 065
  3. CEFTRIAXONE [Suspect]
     Active Substance: CEFTRIAXONE
     Route: 065

REACTIONS (2)
  - Methaemoglobinaemia [Recovering/Resolving]
  - Off label use [Unknown]
